FAERS Safety Report 20770169 (Version 2)
Quarter: 2025Q3

REPORT INFORMATION
  Report Type: Spontaneous
  Country: EU (occurrence: EU)
  Receive Date: 20220429
  Receipt Date: 20250916
  Transmission Date: 20251021
  Serious: Yes (Hospitalization, Other)
  Sender: PURDUE
  Company Number: EU-NAPPMUNDI-GBR-2021-0087003

PATIENT
  Age: 76 Year
  Sex: Female

DRUGS (70)
  1. MORPHINE SULFATE [Suspect]
     Active Substance: MORPHINE SULFATE
     Indication: Back pain
     Route: 065
  2. MORPHINE SULFATE [Suspect]
     Active Substance: MORPHINE SULFATE
     Indication: Pain
  3. MORPHINE SULFATE [Suspect]
     Active Substance: MORPHINE SULFATE
     Indication: Myalgia
  4. MORPHINE SULFATE [Suspect]
     Active Substance: MORPHINE SULFATE
     Indication: Back pain
  5. MORPHINE SULFATE [Suspect]
     Active Substance: MORPHINE SULFATE
     Indication: Myalgia
  6. BUPRENORPHINE [Suspect]
     Active Substance: BUPRENORPHINE
     Indication: Pain
     Route: 062
  7. OXYCODONE HYDROCHLORIDE [Suspect]
     Active Substance: OXYCODONE HYDROCHLORIDE
     Indication: Back pain
     Route: 065
  8. OXYCODONE HYDROCHLORIDE [Suspect]
     Active Substance: OXYCODONE HYDROCHLORIDE
     Indication: Myalgia
  9. QUETIAPINE [Suspect]
     Active Substance: QUETIAPINE
     Indication: Product used for unknown indication
     Dosage: 25 MILLIGRAM, DAILY
     Route: 065
  10. QUETIAPINE [Suspect]
     Active Substance: QUETIAPINE
     Dosage: 50 MILLIGRAM, DAILY
     Route: 065
  11. AMITRIPTYLINE [Suspect]
     Active Substance: AMITRIPTYLINE
     Indication: Product used for unknown indication
     Route: 065
  12. CHLORPROTHIXENE [Suspect]
     Active Substance: CHLORPROTHIXENE
     Indication: Mixed anxiety and depressive disorder
     Dosage: 15 MG, BID (2/DAY)
     Route: 065
  13. FENTANYL [Suspect]
     Active Substance: FENTANYL
     Indication: Pain
     Route: 050
  14. FENTANYL [Suspect]
     Active Substance: FENTANYL
     Indication: Myalgia
     Dosage: 400 MCG, Q2H [REDUCED BY 25 MCG EVERY 2-3 WEEKS]
     Route: 050
  15. FENTANYL [Suspect]
     Active Substance: FENTANYL
     Dosage: 150 MCG, Q1H [REDUCED TO 150 MCG/H DOSE]
     Route: 062
  16. FENTANYL [Suspect]
     Active Substance: FENTANYL
     Dosage: 400 MCG, Q1H [4 PATCHES 100 MCG/H EVERY 3 DAYS]
     Route: 062
  17. FENTANYL [Suspect]
     Active Substance: FENTANYL
     Indication: Back pain
     Route: 065
  18. FENTANYL [Suspect]
     Active Substance: FENTANYL
     Indication: Myalgia
  19. HYDROXYZINE [Suspect]
     Active Substance: HYDROXYZINE HYDROCHLORIDE
     Indication: Product used for unknown indication
     Dosage: 10 MG, DAILY [BEFORE SLEEP]
     Route: 065
  20. TAPENTADOL [Suspect]
     Active Substance: TAPENTADOL
     Indication: Back pain
     Route: 065
  21. TAPENTADOL [Suspect]
     Active Substance: TAPENTADOL
     Indication: Myalgia
  22. VENLAFAXINE [Suspect]
     Active Substance: VENLAFAXINE HYDROCHLORIDE
     Indication: Product used for unknown indication
     Route: 065
  23. SERTRALINE [Suspect]
     Active Substance: SERTRALINE HYDROCHLORIDE
     Indication: Mixed anxiety and depressive disorder
     Route: 065
  24. PREGABALIN [Suspect]
     Active Substance: PREGABALIN
     Indication: Pain
     Dosage: 75 MG IN THE MORNING AND 75 MG IN THE EVENING
     Route: 065
  25. PREGABALIN [Suspect]
     Active Substance: PREGABALIN
     Dosage: 150 MICROGRAM, DAILY
     Route: 048
  26. PREGABALIN [Suspect]
     Active Substance: PREGABALIN
     Dosage: 300 MICROGRAM, DAILY
     Route: 048
  27. CHONDROITIN SULFATE SODIUM NOS [Suspect]
     Active Substance: CHONDROITIN SULFATE SODIUM NOS
     Indication: Product used for unknown indication
     Dosage: 1000 MILLIGRAM DAILY
     Route: 065
  28. TIANEPTINE SODIUM [Suspect]
     Active Substance: TIANEPTINE SODIUM
     Indication: Mixed anxiety and depressive disorder
     Route: 065
  29. FENTANYL CITRATE [Suspect]
     Active Substance: FENTANYL CITRATE
     Indication: Pain
     Dosage: 4800 MICROGRAM, DAILY*TRANSMUCOSAL
     Route: 065
  30. FENTANYL CITRATE [Suspect]
     Active Substance: FENTANYL CITRATE
     Indication: Myalgia
     Dosage: 1 DOSAGE FORM, DAILY
     Route: 065
  31. FENTANYL CITRATE [Suspect]
     Active Substance: FENTANYL CITRATE
     Dosage: 5 DOSAGE FORM, DAILY *TRANSMUCOSAL
     Route: 065
  32. FENTANYL CITRATE [Suspect]
     Active Substance: FENTANYL CITRATE
     Route: 065
  33. FENTANYL CITRATE [Suspect]
     Active Substance: FENTANYL CITRATE
     Dosage: 12 DOSAGE FORM, DAILY
     Route: 048
  34. FENTANYL CITRATE [Suspect]
     Active Substance: FENTANYL CITRATE
     Route: 048
  35. INDAPAMIDE [Concomitant]
     Active Substance: INDAPAMIDE
     Indication: Product used for unknown indication
     Route: 048
  36. BROMHEXINE HYDROCHLORIDE [Concomitant]
     Active Substance: BROMHEXINE HYDROCHLORIDE
     Indication: Product used for unknown indication
     Dosage: 8 MG, DAILY [1 X 1 TABLET]
     Route: 048
  37. BROMHEXINE HYDROCHLORIDE [Concomitant]
     Active Substance: BROMHEXINE HYDROCHLORIDE
     Route: 048
  38. DROTAVERINE HYDROCHLORIDE [Concomitant]
     Active Substance: DROTAVERINE HYDROCHLORIDE
     Indication: Product used for unknown indication
     Route: 048
  39. POTASSIUM CHLORIDE [Concomitant]
     Active Substance: POTASSIUM CHLORIDE
     Indication: Product used for unknown indication
     Route: 048
  40. Urosept [Concomitant]
     Indication: Product used for unknown indication
     Route: 048
  41. TORECAN [Concomitant]
     Active Substance: THIETHYLPERAZINE MALATE
     Indication: Product used for unknown indication
     Dosage: 6.5 MG, DAILY
     Route: 048
  42. LUTEINA [PROGESTERONE] [Concomitant]
     Indication: Product used for unknown indication
     Dosage: 50 MG, DAILY [50 MG (1 X 1)]
     Route: 060
  43. CAPTOPRIL [Concomitant]
     Active Substance: CAPTOPRIL
     Indication: Product used for unknown indication
     Route: 065
  44. ALLOPURINOL [Concomitant]
     Active Substance: ALLOPURINOL
     Indication: Product used for unknown indication
     Route: 048
  45. ALLOPURINOL [Concomitant]
     Active Substance: ALLOPURINOL
     Route: 048
  46. ALLOPURINOL [Concomitant]
     Active Substance: ALLOPURINOL
     Route: 048
  47. ETOFENAMATE [Concomitant]
     Active Substance: ETOFENAMATE
     Indication: Product used for unknown indication
     Route: 061
  48. BISOPROLOL [Concomitant]
     Active Substance: BISOPROLOL
     Indication: Product used for unknown indication
     Route: 048
  49. BISOPROLOL [Concomitant]
     Active Substance: BISOPROLOL
     Route: 048
  50. BISOPROLOL [Concomitant]
     Active Substance: BISOPROLOL
     Route: 065
  51. Rennie [Concomitant]
     Indication: Product used for unknown indication
     Route: 048
  52. MIZODIN [Concomitant]
     Indication: Product used for unknown indication
     Route: 048
  53. MIZODIN [Concomitant]
     Route: 048
  54. MEBEVERINE [Concomitant]
     Active Substance: MEBEVERINE
     Indication: Product used for unknown indication
     Route: 048
  55. MEBEVERINE [Concomitant]
     Active Substance: MEBEVERINE
     Route: 048
  56. VITAMIN D3 [Concomitant]
     Active Substance: CHOLECALCIFEROL
     Indication: Product used for unknown indication
     Route: 048
  57. INHIBACE [Concomitant]
     Active Substance: CILAZAPRIL ANHYDROUS
     Indication: Product used for unknown indication
     Route: 048
  58. LORAZEPAM [Concomitant]
     Active Substance: LORAZEPAM
     Indication: Mixed anxiety and depressive disorder
     Route: 065
  59. PIRACETAM [Concomitant]
     Active Substance: PIRACETAM
     Indication: Product used for unknown indication
     Route: 048
  60. Ulgix Wzdecia [Concomitant]
     Indication: Product used for unknown indication
     Route: 048
  61. TOLPERISONE [Concomitant]
     Active Substance: TOLPERISONE
     Indication: Myalgia
     Route: 065
  62. CHOLESTEROL [Concomitant]
     Active Substance: CHOLESTEROL
     Indication: Product used for unknown indication
     Route: 048
  63. LIDOCAINE [Concomitant]
     Active Substance: LIDOCAINE
     Indication: Pain
     Route: 065
  64. PENTOXIFYLLINE [Concomitant]
     Active Substance: PENTOXIFYLLINE
     Indication: Pain
     Route: 065
  65. DULOXETINE [Concomitant]
     Active Substance: DULOXETINE
     Indication: Product used for unknown indication
     Route: 065
  66. DULOXETINE [Concomitant]
     Active Substance: DULOXETINE
     Route: 065
  67. Structum [Concomitant]
     Indication: Product used for unknown indication
     Route: 048
  68. ULGIX LAXI [Concomitant]
     Indication: Product used for unknown indication
     Route: 048
  69. LIOTON [Concomitant]
     Indication: Product used for unknown indication
     Route: 065
  70. TIANEPTINE [Concomitant]
     Active Substance: TIANEPTINE
     Indication: Product used for unknown indication
     Route: 065

REACTIONS (20)
  - Drug dependence [Not Recovered/Not Resolved]
  - Asthenia [Unknown]
  - Tremor [Unknown]
  - Hyperhidrosis [Unknown]
  - Drug withdrawal syndrome [Unknown]
  - Hypotension [Unknown]
  - Obstruction [Unknown]
  - Mental disorder [Unknown]
  - Pain [Unknown]
  - Intentional product misuse [Unknown]
  - Myalgia [Recovering/Resolving]
  - Constipation [Recovering/Resolving]
  - Drug use disorder [Unknown]
  - Contraindicated product administered [Unknown]
  - Drug abuse [Unknown]
  - Chills [Recovering/Resolving]
  - Anxiety [Recovering/Resolving]
  - Drug ineffective [Unknown]
  - Affective disorder [Recovered/Resolved]
  - Intentional product misuse [Unknown]
